FAERS Safety Report 7573418-6 (Version None)
Quarter: 2011Q2

REPORT INFORMATION
  Report Type: 
  Country: None (occurrence: None)
  Receive Date: 20110627
  Receipt Date: 20110510
  Transmission Date: 20111010
  Serious: No
  Sender: FDA-Public Use
  Company Number: A0926803A

PATIENT
  Age: 18 Year
  Sex: Female

DRUGS (2)
  1. YASMIN [Concomitant]
  2. LAMICTAL [Suspect]
     Dosage: 600MG PER DAY
     Route: 048
     Dates: start: 20100528

REACTIONS (1)
  - DRUG SCREEN POSITIVE [None]
